FAERS Safety Report 8391096-3 (Version None)
Quarter: 2012Q2

REPORT INFORMATION
  Report Type: 
  Country: None (occurrence: None)
  Receive Date: 20120529
  Receipt Date: 20120518
  Transmission Date: 20120825
  Serious: Yes (Other)
  Sender: FDA-Public Use
  Company Number: US-JNJFOC-20120516171

PATIENT
  Sex: Female
  Weight: 65.77 kg

DRUGS (3)
  1. KEFLEX [Suspect]
     Indication: INFECTION
     Dates: start: 20120411
  2. REMICADE [Suspect]
     Indication: RHEUMATOID ARTHRITIS
     Route: 042
     Dates: start: 20070101, end: 20120201
  3. METHOTREXATE [Concomitant]
     Dates: end: 20120201

REACTIONS (14)
  - LACERATION [None]
  - DIZZINESS [None]
  - DECREASED APPETITE [None]
  - FEELING ABNORMAL [None]
  - NAUSEA [None]
  - ORAL CANDIDIASIS [None]
  - HEADACHE [None]
  - COUGH [None]
  - BASAL CELL CARCINOMA [None]
  - FIBROMYALGIA [None]
  - CELLULITIS [None]
  - INFECTION [None]
  - WEIGHT DECREASED [None]
  - IMPAIRED HEALING [None]
